FAERS Safety Report 23666525 (Version 1)
Quarter: 2024Q1

REPORT INFORMATION
  Report Type: Spontaneous
  Country: JP (occurrence: JP)
  Receive Date: 20240324
  Receipt Date: 20240324
  Transmission Date: 20240409
  Serious: Yes (Hospitalization, Other)
  Sender: FDA-Public Use
  Company Number: JP-002147023-NVSJ2024JP003464

PATIENT
  Age: 72 Year
  Sex: Male

DRUGS (2)
  1. ENTRESTO [Suspect]
     Active Substance: SACUBITRIL\VALSARTAN
     Indication: Cardiac failure
     Dosage: 100 MG
     Route: 048
     Dates: start: 20220413, end: 20231213
  2. CARVEDILOL [Suspect]
     Active Substance: CARVEDILOL
     Indication: Cardiac failure
     Dosage: 2.5 MG
     Route: 048
     Dates: start: 20210613, end: 20231213

REACTIONS (3)
  - Dilated cardiomyopathy [Unknown]
  - Anginal equivalent [Unknown]
  - Renal impairment [Unknown]

NARRATIVE: CASE EVENT DATE: 20230413
